FAERS Safety Report 4791651-3 (Version None)
Quarter: 2005Q4

REPORT INFORMATION
  Report Type: 
  Country: None (occurrence: None)
  Receive Date: 20051007
  Receipt Date: 20050929
  Transmission Date: 20060501
  Serious: Yes (Death)
  Sender: FDA-Public Use
  Company Number: US-KINGPHARMUSA00001-K200501283

PATIENT
  Age: 74 Year

DRUGS (1)
  1. QUIBRON-T/SR [Suspect]
     Route: 048

REACTIONS (3)
  - ANTASTHMATIC DRUG LEVEL ABOVE THERAPEUTIC [None]
  - INTENTIONAL DRUG MISUSE [None]
  - OVERDOSE [None]
